FAERS Safety Report 7978151-4 (Version None)
Quarter: 2011Q4

REPORT INFORMATION
  Report Type: 
  Country: None (occurrence: None)
  Receive Date: 20111214
  Receipt Date: 20110930
  Transmission Date: 20120403
  Serious: Yes (Other)
  Sender: FDA-Public Use
  Company Number: US-BAYER-2011-117748

PATIENT
  Age: 68 Year
  Sex: Male

DRUGS (5)
  1. LEUKINE [Suspect]
     Dosage: UNK
     Route: 042
     Dates: start: 20110919, end: 20110930
  2. FLUOROURACIL [Concomitant]
  3. ELOXATIN [Concomitant]
  4. LEUCOVORINE [Concomitant]
  5. LEUKINE [Suspect]
     Indication: LEUKOPENIA
     Dosage: UNK
     Route: 042
     Dates: start: 20110909

REACTIONS (1)
  - WHITE BLOOD CELL COUNT DECREASED [None]
